FAERS Safety Report 7389788-8 (Version None)
Quarter: 2011Q2

REPORT INFORMATION
  Report Type: 
  Country: None (occurrence: None)
  Receive Date: 20110401
  Receipt Date: 20110321
  Transmission Date: 20111010
  Serious: Yes (Death, Hospitalization)
  Sender: FDA-Public Use
  Company Number: GB-BAYER-2011-026483

PATIENT
  Age: 80 Year
  Sex: Male

DRUGS (4)
  1. SERETIDE [Concomitant]
     Indication: ASTHMA
  2. ACETYLSALICYLIC ACID SRT [Suspect]
     Indication: ANTICOAGULANT THERAPY
  3. LUCENTIS [Suspect]
  4. RAMIPRIL [Concomitant]
     Indication: HYPERTENSION

REACTIONS (2)
  - METASTASES TO STOMACH [None]
  - PANCREATIC CARCINOMA [None]
